FAERS Safety Report 7071847-0 (Version None)
Quarter: 2010Q4

REPORT INFORMATION
  Report Type: 
  Country: None (occurrence: None)
  Receive Date: 20101029
  Receipt Date: 20101019
  Transmission Date: 20110411
  Serious: Yes (Hospitalization)
  Sender: FDA-Public Use
  Company Number: PHHO2010US16150

PATIENT
  Sex: Male
  Weight: 89.5 kg

DRUGS (1)
  1. TASIGNA [Suspect]
     Indication: CHRONIC GRAFT VERSUS HOST DISEASE
     Dosage: 200 MG, DAILY
     Route: 048
     Dates: start: 20100910

REACTIONS (2)
  - ABDOMINAL PAIN [None]
  - HERPES ZOSTER [None]
